FAERS Safety Report 15756286 (Version 4)
Quarter: 2023Q2

REPORT INFORMATION
  Report Type: Report from Study
  Country: CA (occurrence: CA)
  Receive Date: 20181224
  Receipt Date: 20230415
  Transmission Date: 20230722
  Serious: Yes (Other)
  Sender: FDA-Public Use
  Company Number: PHHY2018CA191232

PATIENT
  Sex: Male

DRUGS (1)
  1. GILENYA [Suspect]
     Active Substance: FINGOLIMOD HYDROCHLORIDE
     Indication: Relapsing-remitting multiple sclerosis
     Dosage: UNK
     Route: 048
     Dates: start: 20160122, end: 20230310

REACTIONS (4)
  - Cerebral haemorrhage [Unknown]
  - Central nervous system lesion [Recovering/Resolving]
  - Drug intolerance [Unknown]
  - Drug effect less than expected [Unknown]
